FAERS Safety Report 17410934 (Version 1)
Quarter: 2020Q1

REPORT INFORMATION
  Report Type: Report from Study
  Country: US (occurrence: US)
  Receive Date: 20200212
  Receipt Date: 20200212
  Transmission Date: 20200409
  Serious: No
  Sender: FDA-Public Use
  Company Number: NVSC2020US032699

PATIENT
  Sex: Male

DRUGS (1)
  1. ILARIS [Suspect]
     Active Substance: CANAKINUMAB
     Indication: AUTOINFLAMMATORY DISEASE
     Dosage: 30 MG, Q4W
     Route: 058
     Dates: start: 20191107

REACTIONS (5)
  - Malaise [Unknown]
  - Pharyngitis streptococcal [Unknown]
  - Ill-defined disorder [Unknown]
  - Influenza [Unknown]
  - Pyrexia [Unknown]
